FAERS Safety Report 24014679 (Version 1)
Quarter: 2024Q2

REPORT INFORMATION
  Report Type: Spontaneous
  Country: US (occurrence: None)
  Receive Date: 20240625
  Receipt Date: 20240625
  Transmission Date: 20240716
  Serious: Yes (Death)
  Sender: FDA-Public Use
  Company Number: None

PATIENT
  Age: 86 Year
  Sex: Male

DRUGS (18)
  1. NUPLAZID [Suspect]
     Active Substance: PIMAVANSERIN TARTRATE
     Indication: Parkinson^s disease
     Dosage: 34 MG DAILOY ORAL
     Route: 048
     Dates: start: 20230327, end: 20240624
  2. METFORMIN [Concomitant]
     Active Substance: METFORMIN HYDROCHLORIDE
  3. ELIQUIS [Concomitant]
     Active Substance: APIXABAN
  4. PANTOPRAZOLE [Concomitant]
     Active Substance: PANTOPRAZOLE
  5. LIPITOR [Concomitant]
     Active Substance: ATORVASTATIN CALCIUM
  6. LANOXIN [Concomitant]
     Active Substance: DIGOXIN
  7. MIRTAZAPINE [Concomitant]
     Active Substance: MIRTAZAPINE
  8. ARICEPT [Concomitant]
     Active Substance: DONEPEZIL HYDROCHLORIDE
  9. CARBIDOPA\LEVODOPA [Concomitant]
     Active Substance: CARBIDOPA\LEVODOPA
  10. ENTACAPONE [Concomitant]
     Active Substance: ENTACAPONE
  11. IPRATROPIUM [Concomitant]
     Active Substance: IPRATROPIUM
  12. GLYCOPYRROLATE [Concomitant]
     Active Substance: GLYCOPYRROLATE
  13. COENZYME Q10 [Concomitant]
     Active Substance: DIETARY SUPPLEMENT\UBIDECARENONE
  14. VITAMIN D3 [Concomitant]
     Active Substance: CHOLECALCIFEROL
  15. Clonzapem [Concomitant]
  16. ACTOS [Concomitant]
     Active Substance: PIOGLITAZONE HYDROCHLORIDE
  17. PROBIOTICS NOS [Concomitant]
     Active Substance: PROBIOTICS NOS
  18. IRON [Concomitant]
     Active Substance: IRON

REACTIONS (1)
  - Death [None]

NARRATIVE: CASE EVENT DATE: 20240624
